FAERS Safety Report 9929073 (Version 1)
Quarter: 2014Q1

REPORT INFORMATION
  Report Type: Spontaneous
  Country: DE (occurrence: None)
  Receive Date: 20140225
  Receipt Date: 20140225
  Transmission Date: 20141002
  Serious: Yes (Other)
  Sender: FDA-Public Use
  Company Number: 1402-0383

PATIENT
  Age: 63 Year
  Sex: Female

DRUGS (1)
  1. EYLEA [Suspect]
     Indication: MACULAR DEGENERATION
     Route: 047

REACTIONS (4)
  - Sepsis [None]
  - Dermatitis [None]
  - Headache [None]
  - Urinary tract infection [None]
